FAERS Safety Report 11611534 (Version 1)
Quarter: 2015Q4

REPORT INFORMATION
  Report Type: Report from Study
  Country: JP (occurrence: JP)
  Receive Date: 20151008
  Receipt Date: 20151008
  Transmission Date: 20160304
  Serious: Yes (Death)
  Sender: FDA-Public Use
  Company Number: JP-TEVA-598939ISR

PATIENT

DRUGS (2)
  1. CISPLATIN. [Suspect]
     Active Substance: CISPLATIN
     Indication: NON-SMALL CELL LUNG CANCER
     Dosage: 60 MG/M2, CYCLIC (ON DAY 1 REPEATED EVERY 4 WEEKS)
  2. TS-1 [Suspect]
     Active Substance: GIMERACIL\OTERACIL\TEGAFUR
     Indication: NON-SMALL CELL LUNG CANCER
     Dosage: 80 MG/M2 DAILY; 40 MG/M2, 2X/DAY ON DAYS 1-14
     Route: 048

REACTIONS (1)
  - Death [Fatal]
